FAERS Safety Report 20577899 (Version 1)
Quarter: 2022Q1

REPORT INFORMATION
  Report Type: Spontaneous
  Country: US (occurrence: None)
  Receive Date: 20220310
  Receipt Date: 20220310
  Transmission Date: 20220423
  Serious: Yes (Death)
  Sender: FDA-Public Use
  Company Number: None

PATIENT
  Age: 75 Year
  Sex: Male
  Weight: 92 kg

DRUGS (1)
  1. TOCILIZUMAB [Suspect]
     Active Substance: TOCILIZUMAB
     Indication: Upper respiratory tract infection
     Dosage: 800 MG ONCE IV?
     Route: 042
     Dates: start: 20220224, end: 20220224

REACTIONS (14)
  - Confusional state [None]
  - Asthenia [None]
  - Hypophagia [None]
  - Fall [None]
  - Balance disorder [None]
  - Dizziness [None]
  - Dizziness [None]
  - Tachypnoea [None]
  - Tachycardia [None]
  - Alcohol abuse [None]
  - Respiratory depression [None]
  - Blood urea increased [None]
  - Blood creatinine increased [None]
  - Cardio-respiratory arrest [None]

NARRATIVE: CASE EVENT DATE: 20220303
